FAERS Safety Report 19886943 (Version 1)
Quarter: 2021Q3

REPORT INFORMATION
  Report Type: Spontaneous
  Country: US (occurrence: US)
  Receive Date: 20210927
  Receipt Date: 20210927
  Transmission Date: 20211014
  Serious: No
  Sender: FDA-Public Use
  Company Number: US-PFIZER INC-202100971530

PATIENT
  Age: 24 Year
  Sex: Female

DRUGS (1)
  1. XELJANZ [Suspect]
     Active Substance: TOFACITINIB CITRATE
     Dosage: 10 MG
     Dates: start: 20210629

REACTIONS (9)
  - Arthralgia [Unknown]
  - Back pain [Unknown]
  - Headache [Unknown]
  - Constipation [Unknown]
  - Migraine [Unknown]
  - Hypoaesthesia [Unknown]
  - Diarrhoea [Unknown]
  - Nausea [Unknown]
  - Abdominal discomfort [Unknown]
